FAERS Safety Report 17515866 (Version 1)
Quarter: 2020Q1

REPORT INFORMATION
  Report Type: Spontaneous
  Country: US (occurrence: US)
  Receive Date: 20200309
  Receipt Date: 20200309
  Transmission Date: 20200409
  Serious: No
  Sender: FDA-Public Use
  Company Number: US-009507513-2002USA009797

PATIENT
  Sex: Male

DRUGS (2)
  1. PROTONIX [Concomitant]
     Active Substance: PANTOPRAZOLE SODIUM
  2. PREGNYL [Suspect]
     Active Substance: CHORIOGONADOTROPIN ALFA
     Indication: TESTICULAR FAILURE
     Dosage: 2.5 MILLILITER, QW; STRENGTH: 10,000 UNIT MULTIPLE DOSE VIAL (MDV) 60
     Route: 030
     Dates: start: 20190305

REACTIONS (2)
  - Product dose omission [Unknown]
  - Feeling abnormal [Not Recovered/Not Resolved]
